FAERS Safety Report 4346201-2 (Version None)
Quarter: 2004Q2

REPORT INFORMATION
  Report Type: 
  Country: None (occurrence: None)
  Receive Date: 20040426
  Receipt Date: 20040423
  Transmission Date: 20050107
  Serious: Yes (Death)
  Sender: FDA-Public Use
  Company Number: NO-JNJFOC-20040400306

PATIENT
  Sex: Male

DRUGS (12)
  1. HALDOL [Suspect]
     Route: 042
  2. HALDOL [Suspect]
     Indication: RESTLESSNESS
     Route: 042
  3. MORPHINE [Interacting]
     Indication: ACUTE MYOCARDIAL INFARCTION
     Route: 065
  4. ACETYLSALISYLACID [Concomitant]
     Indication: ACUTE MYOCARDIAL INFARCTION
     Route: 049
  5. ENOXAPARIN SODIUM [Concomitant]
     Indication: ACUTE MYOCARDIAL INFARCTION
     Route: 042
  6. GLYCEROL TRINITRATE [Concomitant]
     Route: 062
  7. FINASTERID [Concomitant]
     Route: 049
  8. N ACETYLCYSTEIN [Concomitant]
     Route: 049
  9. DIGITOKSIN [Concomitant]
     Route: 049
  10. FUROSEMIDE [Concomitant]
     Route: 049
  11. LISINOPRIL [Concomitant]
     Route: 049
  12. METOPROLOL [Concomitant]
     Route: 049

REACTIONS (5)
  - ARRHYTHMIA [None]
  - CARDIAC ARREST [None]
  - HAEMOGLOBIN DECREASED [None]
  - RESPIRATORY ARREST [None]
  - VENTRICULAR TACHYCARDIA [None]
